FAERS Safety Report 7190786-8 (Version None)
Quarter: 2010Q4

REPORT INFORMATION
  Report Type: 
  Country: None (occurrence: None)
  Receive Date: 20101222
  Receipt Date: 20101222
  Transmission Date: 20110411
  Serious: Yes (Other)
  Sender: FDA-Public Use
  Company Number: None

PATIENT
  Sex: Female
  Weight: 57.1532 kg

DRUGS (1)
  1. PLAQUENIL [Suspect]
     Indication: ANTINUCLEAR ANTIBODY POSITIVE
     Dosage: 200 MG ONE BID PO
     Route: 048
     Dates: start: 20101006, end: 20101104

REACTIONS (3)
  - BURNING SENSATION [None]
  - JOINT STIFFNESS [None]
  - PRURITUS [None]
